FAERS Safety Report 12760269 (Version 1)
Quarter: 2016Q3

REPORT INFORMATION
  Report Type: Spontaneous
  Country: US (occurrence: US)
  Receive Date: 20160919
  Receipt Date: 20160919
  Transmission Date: 20161109
  Serious: Yes (Congenital Anomaly, Other)
  Sender: FDA-Public Use
  Company Number: US-PFIZER INC-2016437510

PATIENT
  Sex: Male

DRUGS (1)
  1. ZOLOFT [Suspect]
     Active Substance: SERTRALINE HYDROCHLORIDE
     Dosage: UNK
     Route: 064

REACTIONS (6)
  - Pulmonary valve stenosis congenital [Unknown]
  - Congenital mitral valve incompetence [Unknown]
  - Tricuspid valve incompetence [Unknown]
  - Maternal exposure during pregnancy [Unknown]
  - Heart disease congenital [Unknown]
  - Congenital tricuspid valve stenosis [Unknown]
